FAERS Safety Report 7492035-X (Version None)
Quarter: 2011Q2

REPORT INFORMATION
  Report Type: 
  Country: None (occurrence: None)
  Receive Date: 20110519
  Receipt Date: 20110505
  Transmission Date: 20111010
  Serious: Yes (Other)
  Sender: FDA-Public Use
  Company Number: CA-JNJFOC-20110504238

PATIENT
  Sex: Male
  Weight: 82.5 kg

DRUGS (5)
  1. ATIVAN [Concomitant]
  2. IMURAN [Concomitant]
  3. REMICADE [Suspect]
     Indication: RHEUMATOID ARTHRITIS
     Route: 042
     Dates: start: 20100801
  4. REMICADE [Suspect]
     Indication: CROHN'S DISEASE
     Route: 042
     Dates: start: 20100801
  5. ASACOL [Concomitant]

REACTIONS (1)
  - PTERYGIUM [None]
